FAERS Safety Report 17370567 (Version 1)
Quarter: 2020Q1

REPORT INFORMATION
  Report Type: Spontaneous
  Country: US (occurrence: US)
  Receive Date: 20200205
  Receipt Date: 20200205
  Transmission Date: 20200409
  Serious: No
  Sender: FDA-Public Use
  Company Number: US-SA-2020SA029210

PATIENT
  Age: 43 Year
  Sex: Male
  Weight: 111.6 kg

DRUGS (4)
  1. BIOTIN [Concomitant]
     Active Substance: BIOTIN
     Dosage: UNK
  2. NIACIN. [Concomitant]
     Active Substance: NIACIN
  3. VITAMIN B12 [Concomitant]
     Active Substance: CYANOCOBALAMIN
  4. AUBAGIO [Suspect]
     Active Substance: TERIFLUNOMIDE
     Indication: MULTIPLE SCLEROSIS
     Dosage: 14 MG, QD
     Route: 048
     Dates: start: 20200106

REACTIONS (4)
  - Gait disturbance [Unknown]
  - Fatigue [Unknown]
  - Limb discomfort [Unknown]
  - Dysarthria [Unknown]

NARRATIVE: CASE EVENT DATE: 202001
